FAERS Safety Report 21864073 (Version 1)
Quarter: 2023Q1

REPORT INFORMATION
  Report Type: Report from Study
  Country: US (occurrence: US)
  Receive Date: 20230116
  Receipt Date: 20230116
  Transmission Date: 20230418
  Serious: No
  Sender: FDA-Public Use
  Company Number: US-ABBVIE-4239877

PATIENT
  Sex: Female

DRUGS (1)
  1. HUMIRA [Suspect]
     Active Substance: ADALIMUMAB
     Indication: Hidradenitis
     Dosage: CF?FORM STRENGTH: 40?EVENT ONSET SHOULD BE 2022 AND END DATE ALSO 2022
     Route: 058
     Dates: start: 20221018

REACTIONS (1)
  - Nasopharyngitis [Recovered/Resolved]
